FAERS Safety Report 10402872 (Version 1)
Quarter: 2014Q3

REPORT INFORMATION
  Report Type: Spontaneous
  Country: JP (occurrence: JP)
  Receive Date: 20140822
  Receipt Date: 20140822
  Transmission Date: 20150326
  Serious: Yes (Hospitalization, Other)
  Sender: FDA-Public Use
  Company Number: JP-ACTAVIS-2014-18129

PATIENT
  Age: 84 Year
  Sex: Male

DRUGS (4)
  1. CILOSTAZOL (AELLC) [Suspect]
     Active Substance: CILOSTAZOL
     Indication: ARTERIAL RESTENOSIS
     Dosage: 40 MG, UNKNOWN
     Route: 065
  2. SARPOGRELATE [Suspect]
     Active Substance: SARPOGRELATE
     Indication: ARTERIAL RESTENOSIS
     Dosage: 200 MG, UNKNOWN
     Route: 065
  3. WARFARIN (UNKNOWN) [Suspect]
     Active Substance: WARFARIN
     Indication: ATRIAL FIBRILLATION
     Dosage: 1 MG, UNKNOWN
     Route: 065
  4. CLOPIDOGREL (UNKNOWN) [Suspect]
     Active Substance: CLOPIDOGREL BISULFATE
     Indication: ARTERIAL RESTENOSIS
     Dosage: 25 MG, UNKNOWN
     Route: 065

REACTIONS (2)
  - Anticoagulation drug level below therapeutic [Unknown]
  - Haematoma [Recovered/Resolved]
